FAERS Safety Report 18929193 (Version 1)
Quarter: 2021Q1

REPORT INFORMATION
  Report Type: Spontaneous
  Country: US (occurrence: US)
  Receive Date: 20210223
  Receipt Date: 20210223
  Transmission Date: 20210420
  Serious: No
  Sender: FDA-Public Use
  Company Number: US-ROCHE-2712489

PATIENT
  Age: 4 Year
  Sex: Male

DRUGS (4)
  1. NUTROPIN [Suspect]
     Active Substance: SOMATROPIN
  2. NUTROPIN [Suspect]
     Active Substance: SOMATROPIN
     Indication: BLOOD GROWTH HORMONE
     Dosage: THERAPY ONGOING STATUS: YES, NUSPIN 5 PEN
     Route: 058
     Dates: start: 202010
  3. NUTROPIN [Suspect]
     Active Substance: SOMATROPIN
     Route: 058
     Dates: start: 20200921, end: 20201115
  4. NUTROPIN [Suspect]
     Active Substance: SOMATROPIN

REACTIONS (3)
  - Anxiety [Unknown]
  - Agitation [Unknown]
  - Injection site pain [Unknown]

NARRATIVE: CASE EVENT DATE: 20201005
